FAERS Safety Report 23861713 (Version 3)
Quarter: 2024Q2

REPORT INFORMATION
  Report Type: Spontaneous
  Country: US (occurrence: US)
  Receive Date: 20240516
  Receipt Date: 20240621
  Transmission Date: 20240715
  Serious: Yes (Life-Threatening, Hospitalization, Other)
  Sender: FDA-Public Use
  Company Number: US-AUROBINDO-AUR-APL-2024-022700

PATIENT
  Age: 44 Year
  Sex: Male

DRUGS (1)
  1. TESTOSTERONE [Suspect]
     Active Substance: TESTOSTERONE
     Indication: Androgen replacement therapy
     Dosage: 200 MILLIGRAM, EVERY WEEK FOR THE LAST 5 YEARS
     Route: 030

REACTIONS (5)
  - Pulmonary embolism [Unknown]
  - Left ventricular failure [Unknown]
  - Pulmonary hypertension [Unknown]
  - Oestradiol increased [Unknown]
  - Blood testosterone increased [Unknown]
